FAERS Safety Report 7341863-X (Version None)
Quarter: 2011Q1

REPORT INFORMATION
  Report Type: 
  Country: None (occurrence: None)
  Receive Date: 20110309
  Receipt Date: 20110228
  Transmission Date: 20110831
  Serious: Yes (Hospitalization)
  Sender: FDA-Public Use
  Company Number: US-CELGENEUS-163-21880-11030078

PATIENT
  Sex: Male
  Weight: 79.45 kg

DRUGS (13)
  1. OXYCONTIN [Concomitant]
     Route: 048
  2. POTASSIUM CHLORIDE [Concomitant]
     Route: 048
  3. REVLIMID [Suspect]
     Indication: MULTIPLE MYELOMA
     Dosage: 10 MILLIGRAM
     Route: 048
     Dates: start: 20090707, end: 20101102
  4. ZOMETA [Concomitant]
     Route: 051
  5. COUMADIN [Concomitant]
     Route: 048
  6. LASIX [Concomitant]
     Route: 048
  7. LOPRESSOR [Concomitant]
     Route: 048
  8. DEXAMETHASONE [Concomitant]
     Route: 048
  9. VENTOLIN [Concomitant]
     Route: 055
     Dates: start: 20100824
  10. REVLIMID [Suspect]
     Dosage: 25 MILLIGRAM
     Route: 048
     Dates: start: 20101102, end: 20110217
  11. COLACE [Concomitant]
     Route: 048
  12. VITAMIN D [Concomitant]
     Dosage: 5000 IU (INTERNATIONAL UNIT)
     Route: 048
  13. AMOX-CLAV [Concomitant]
     Route: 048
     Dates: start: 20100215

REACTIONS (4)
  - HAEMORRHAGE [None]
  - HAEMOPTYSIS [None]
  - THROMBOCYTOPENIA [None]
  - MASS [None]
